FAERS Safety Report 8346019-X (Version None)
Quarter: 2012Q2

REPORT INFORMATION
  Report Type: 
  Country: None (occurrence: None)
  Receive Date: 20120509
  Receipt Date: 20120504
  Transmission Date: 20120825
  Serious: Yes (Other)
  Sender: FDA-Public Use
  Company Number: US-PFIZER INC-2011046036

PATIENT
  Sex: Female
  Weight: 63.039 kg

DRUGS (7)
  1. TRILEPTAL [Concomitant]
     Indication: BLOOD CHOLESTEROL INCREASED
     Dosage: 135 MG, DAILY
  2. FLORINEF [Concomitant]
     Indication: ADDISON'S DISEASE
     Dosage: 0.1 MG 5 DAYS A WEEK
  3. VYTORIN [Concomitant]
     Indication: BLOOD CHOLESTEROL INCREASED
     Dosage: 10/40 MG DAILY
  4. SYNTHROID [Concomitant]
     Indication: THYROID DISORDER
     Dosage: 0.112 MG, DAILY
  5. RELPAX [Suspect]
     Indication: MIGRAINE
     Dosage: 40 MG, AS NEEDED
  6. PREDNISONE [Concomitant]
     Indication: ADDISON'S DISEASE
     Dosage: 7.5 MG, DAILY
  7. IMITREX [Suspect]
     Indication: MIGRAINE
     Dosage: UNK

REACTIONS (6)
  - ANXIETY [None]
  - DEPRESSION [None]
  - NAUSEA [None]
  - VOMITING [None]
  - DRUG INEFFECTIVE [None]
  - MIGRAINE [None]
